FAERS Safety Report 5227624-6 (Version None)
Quarter: 2007Q1

REPORT INFORMATION
  Report Type: 
  Country: None (occurrence: None)
  Receive Date: 20061201
  Receipt Date: 20061017
  Transmission Date: 20070707
  Serious: No
  Sender: FDA-Public Use
  Company Number: US200610003121

PATIENT
  Age: 59 Year
  Sex: Female

DRUGS (1)
  1. CYMBALTA [Suspect]
     Indication: FIBROMYALGIA
     Dosage: 30 MG

REACTIONS (9)
  - AGGRESSION [None]
  - ANOREXIA [None]
  - CONSTIPATION [None]
  - EMOTIONAL DISTRESS [None]
  - HOMICIDAL IDEATION [None]
  - PALPITATIONS [None]
  - PERSONALITY CHANGE [None]
  - SUICIDAL IDEATION [None]
  - WEIGHT DECREASED [None]
